FAERS Safety Report 8476586-7 (Version None)
Quarter: 2012Q2

REPORT INFORMATION
  Report Type: 
  Country: None (occurrence: None)
  Receive Date: 20120622
  Receipt Date: 20120613
  Transmission Date: 20120825
  Serious: Yes (Other)
  Sender: FDA-Public Use
  Company Number: 2012SP032461

PATIENT
  Age: 67 Year
  Sex: Male
  Weight: 68 kg

DRUGS (13)
  1. RHYTHMY [Concomitant]
  2. ANTEBATE [Concomitant]
  3. MUCOSTA [Concomitant]
  4. LOCOID [Concomitant]
  5. INDOMETHACIN [Concomitant]
  6. TELAVIC (ANTIVIRALS NOS) [Suspect]
     Indication: HEPATITIS C
     Dosage: 1500 MG;QD;PO
     Route: 048
     Dates: start: 20120405, end: 20120523
  7. OLOPATADINE HCL [Concomitant]
  8. FAMOTIDINE [Concomitant]
  9. ORADOL [Concomitant]
  10. PYRINAZIN [Concomitant]
  11. PEG-INTRON [Suspect]
     Indication: HEPATITIS C
     Dosage: 1.5 MCG/KG;QW;PARN
     Route: 051
     Dates: start: 20120405, end: 20120523
  12. REBETOL [Suspect]
     Indication: HEPATITIS C
     Dosage: 600 MG;QD;PO
     Route: 048
     Dates: start: 20120405, end: 20120523
  13. LOXONIN [Concomitant]

REACTIONS (7)
  - ARTHRALGIA [None]
  - DECREASED APPETITE [None]
  - RASH [None]
  - THIRST [None]
  - ABDOMINAL PAIN UPPER [None]
  - PRURITUS [None]
  - INSOMNIA [None]
